FAERS Safety Report 21252179 (Version 1)
Quarter: 2022Q3

REPORT INFORMATION
  Report Type: Spontaneous
  Country: US (occurrence: US)
  Receive Date: 20220825
  Receipt Date: 20220825
  Transmission Date: 20221026
  Serious: No
  Sender: FDA-Public Use
  Company Number: US-BAUSCH-BL-2022-020760

PATIENT
  Age: 65 Year
  Sex: Female
  Weight: 82.628 kg

DRUGS (2)
  1. DEXAMETHASONE\NEOMYCIN\POLYMYXIN B SULFATE [Suspect]
     Active Substance: DEXAMETHASONE\NEOMYCIN\POLYMYXIN B SULFATE
     Indication: Eye infection
     Route: 047
     Dates: start: 20220818, end: 20220821
  2. SINGULAIR [Concomitant]
     Active Substance: MONTELUKAST SODIUM
     Indication: Product used for unknown indication

REACTIONS (7)
  - Eye infection [Not Recovered/Not Resolved]
  - Condition aggravated [Not Recovered/Not Resolved]
  - Vision blurred [Recovering/Resolving]
  - Instillation site dryness [Recovering/Resolving]
  - Headache [Recovering/Resolving]
  - Product quality issue [Unknown]
  - Drug ineffective [Unknown]
